FAERS Safety Report 4373826-0 (Version None)
Quarter: 2004Q2

REPORT INFORMATION
  Report Type: 
  Country: None (occurrence: None)
  Receive Date: 20040603
  Receipt Date: 20040518
  Transmission Date: 20050107
  Serious: Yes (Hospitalization)
  Sender: FDA-Public Use
  Company Number: CA-SHR-04-021792

PATIENT
  Age: 63 Year
  Sex: Female

DRUGS (1)
  1. BETASERON [Suspect]
     Indication: MULTIPLE SCLEROSIS
     Dosage: 8 MIU, EVERY 2D, SUBCUTANEOUS
     Route: 058
     Dates: start: 20010417

REACTIONS (6)
  - BRAIN DAMAGE [None]
  - CONFUSIONAL STATE [None]
  - CYSTITIS [None]
  - FALL [None]
  - JOINT INJURY [None]
  - OXYGEN SATURATION DECREASED [None]
